FAERS Safety Report 9581486 (Version 1)
Quarter: 2013Q4

REPORT INFORMATION
  Report Type: Spontaneous
  Country: DE (occurrence: DE)
  Receive Date: 20131002
  Receipt Date: 20131002
  Transmission Date: 20140711
  Serious: Yes (Other)
  Sender: FDA-Public Use
  Company Number: PHHY2013DE108319

PATIENT
  Sex: Female

DRUGS (4)
  1. LEPONEX [Suspect]
     Indication: SCHIZOPHRENIA
     Dosage: 400 MG, QD
     Route: 048
  2. LEPONEX [Suspect]
     Dosage: 200 MG, QD
     Route: 048
  3. FLUANXOL//FLUPENTIXOL DECANOATE [Concomitant]
     Dosage: 10 MG
  4. VALPROAT [Concomitant]
     Dosage: UNK

REACTIONS (1)
  - Bladder cancer [Unknown]
